FAERS Safety Report 6760159-8 (Version None)
Quarter: 2010Q2

REPORT INFORMATION
  Report Type: 
  Country: None (occurrence: None)
  Receive Date: 20100608
  Receipt Date: 20100531
  Transmission Date: 20101027
  Serious: Yes (Hospitalization)
  Sender: FDA-Public Use
  Company Number: ZA-ALLERGAN-1007155US

PATIENT
  Age: 56 Year
  Sex: Female
  Weight: 76 kg

DRUGS (8)
  1. BLINDED DEXAMETHASONE 0.35 MG IMP [Suspect]
     Indication: DIABETIC RETINAL OEDEMA
     Dosage: UNK
     Dates: start: 20091026
  2. BLINDED DEXAMETHASONE 0.7 MG IMP [Suspect]
     Indication: DIABETIC RETINAL OEDEMA
     Dosage: UNK
     Dates: start: 20091026
  3. BLINDED INTRAVITREAL SHAM [Suspect]
     Indication: DIABETIC RETINAL OEDEMA
     Dosage: UNK
     Dates: start: 20091026
  4. POSURDEX [Suspect]
     Dosage: UNK
     Dates: start: 20080403, end: 20080407
  5. POSURDEX [Suspect]
     Dosage: UNK
     Dates: start: 20081013, end: 20081013
  6. POSURDEX [Suspect]
     Dosage: UNK
     Dates: start: 20090511, end: 20090511
  7. POSURDEX [Suspect]
     Dosage: UNK
     Dates: start: 20091026, end: 20091026
  8. ADALAT [Concomitant]
     Indication: HYPERTENSION
     Dosage: 30 MG, UNK
     Route: 048

REACTIONS (1)
  - CATARACT [None]
